FAERS Safety Report 10843720 (Version 1)
Quarter: 2015Q1

REPORT INFORMATION
  Report Type: Spontaneous
  Country: US (occurrence: US)
  Receive Date: 20150220
  Receipt Date: 20150220
  Transmission Date: 20150721
  Serious: No
  Sender: FDA-Public Use
  Company Number: US-ABBVIE-14P-163-1285293-00

PATIENT

DRUGS (4)
  1. HUMIRA [Suspect]
     Active Substance: ADALIMUMAB
     Indication: POUCHITIS
  2. REMICADE [Suspect]
     Active Substance: INFLIXIMAB
     Indication: FISTULA
  3. HUMIRA [Suspect]
     Active Substance: ADALIMUMAB
     Indication: FISTULA
  4. REMICADE [Suspect]
     Active Substance: INFLIXIMAB
     Indication: POUCHITIS

REACTIONS (5)
  - Arthritis [Not Recovered/Not Resolved]
  - Intestinal gangrene [Not Recovered/Not Resolved]
  - Drug ineffective [Unknown]
  - Erythema nodosum [Not Recovered/Not Resolved]
  - Pyoderma [Not Recovered/Not Resolved]
